FAERS Safety Report 9270416 (Version 3)
Quarter: 2013Q3

REPORT INFORMATION
  Report Type: Spontaneous
  Country: US (occurrence: US)
  Receive Date: 20130503
  Receipt Date: 20130701
  Transmission Date: 20140515
  Serious: Yes (Hospitalization, Other)
  Sender: FDA-Public Use
  Company Number: US-009507513-1304USA017598

PATIENT
  Sex: Female
  Weight: 89.8 kg

DRUGS (1)
  1. NUVARING [Suspect]
     Indication: MENSTRUAL CYCLE MANAGEMENT
     Dosage: 1 DF, UNK
     Route: 067
     Dates: start: 200511, end: 20110422

REACTIONS (21)
  - Interstitial lung disease [Unknown]
  - Pulmonary embolism [Unknown]
  - Deep vein thrombosis [Unknown]
  - Asthma [Unknown]
  - Asthma [Unknown]
  - Off label use [Unknown]
  - Pain in extremity [Unknown]
  - Pharyngeal disorder [Unknown]
  - Ear disorder [Unknown]
  - Rash [Unknown]
  - Haemangioma [Unknown]
  - Colitis ulcerative [Unknown]
  - Haemangioma of liver [Unknown]
  - Splenic cyst [Unknown]
  - Rhinitis allergic [Unknown]
  - Cholelithiasis [Unknown]
  - Goitre [Unknown]
  - Sinusitis [Unknown]
  - Hypersensitivity [Unknown]
  - Gastrointestinal disorder [Unknown]
  - Electrocardiogram ST-T change [Unknown]
